FAERS Safety Report 5696887-5 (Version None)
Quarter: 2008Q2

REPORT INFORMATION
  Report Type: 
  Country: None (occurrence: None)
  Receive Date: 20080408
  Receipt Date: 20070807
  Transmission Date: 20081010
  Serious: Yes (Hospitalization, Other)
  Sender: FDA-Public Use
  Company Number: US-BAYER-US-2006-040810

PATIENT
  Age: 14 Year
  Sex: Female
  Weight: 44 kg

DRUGS (4)
  1. YASMIN [Suspect]
     Indication: MENSTRUATION IRREGULAR
     Dates: start: 20061105, end: 20061125
  2. ADOXA [Concomitant]
  3. ALLEGRA [Concomitant]
  4. ADVAIR HFA [Concomitant]

REACTIONS (8)
  - CONVERSION DISORDER [None]
  - FATIGUE [None]
  - HEADACHE [None]
  - MALAISE [None]
  - MOTOR DYSFUNCTION [None]
  - MUSCLE TWITCHING [None]
  - MYALGIA [None]
  - PHARYNGOLARYNGEAL PAIN [None]
